FAERS Safety Report 9538334 (Version 2)
Quarter: 2013Q3

REPORT INFORMATION
  Report Type: Spontaneous
  Country: JP (occurrence: JP)
  Receive Date: 20130920
  Receipt Date: 20130920
  Transmission Date: 20140515
  Serious: Yes (Other)
  Sender: FDA-Public Use
  Company Number: JP-AMGEN-JPNSP2013056166

PATIENT
  Age: 64 Year
  Sex: Male
  Weight: 48 kg

DRUGS (8)
  1. VECTIBIX [Suspect]
     Indication: COLON CANCER
     Dosage: 300 MG, Q2WK
     Route: 041
     Dates: start: 20130507, end: 20130716
  2. ELPLAT [Suspect]
     Indication: COLON CANCER
     Dosage: UNK
     Route: 041
     Dates: start: 20130408, end: 20130422
  3. ELPLAT [Suspect]
     Dosage: 130 MG, Q2WK
     Route: 041
     Dates: start: 20130507, end: 20130716
  4. CALCIUM LEVOFOLINATE [Concomitant]
     Indication: COLON CANCER
     Dosage: UNK
     Route: 041
     Dates: start: 20130408, end: 20130422
  5. CALCIUM LEVOFOLINATE [Concomitant]
     Dosage: 300 MG, Q2WK
     Route: 041
     Dates: start: 20130507, end: 20130716
  6. 5-FU                               /00098801/ [Concomitant]
     Indication: COLON CANCER
     Dosage: UNK
     Route: 042
     Dates: start: 20130408, end: 20130422
  7. 5-FU                               /00098801/ [Concomitant]
     Dosage: 600 MG, Q2WK
     Route: 040
     Dates: start: 20130507, end: 20130716
  8. 5-FU                               /00098801/ [Concomitant]
     Dosage: 3700 MG, Q2WK
     Route: 041
     Dates: start: 20130507, end: 20130716

REACTIONS (2)
  - Gastrointestinal mucosal necrosis [Unknown]
  - Epistaxis [Unknown]
